FAERS Safety Report 7288311-6 (Version None)
Quarter: 2011Q1

REPORT INFORMATION
  Report Type: 
  Country: None (occurrence: None)
  Receive Date: 20110207
  Receipt Date: 20110207
  Transmission Date: 20110831
  Serious: Yes (Other)
  Sender: FDA-Public Use
  Company Number: None

PATIENT
  Age: 27 Year
  Sex: Female
  Weight: 78.0187 kg

DRUGS (1)
  1. URINARY PAIN RELIEF PHENAZOPYRIDINE HYDROCHLORIDE [Suspect]
     Indication: URINARY TRACT INFECTION
     Dosage: ONE DOSE, TWO TABLETS ONCE PO
     Route: 048
     Dates: start: 20110203, end: 20110203

REACTIONS (6)
  - THROAT IRRITATION [None]
  - NAUSEA [None]
  - PHARYNGEAL OEDEMA [None]
  - EYE SWELLING [None]
  - SINUS DISORDER [None]
  - GASTROINTESTINAL DISORDER [None]
